FAERS Safety Report 7690676-8 (Version None)
Quarter: 2011Q3

REPORT INFORMATION
  Report Type: 
  Country: None (occurrence: None)
  Receive Date: 20110818
  Receipt Date: 20110812
  Transmission Date: 20111222
  Serious: Yes (Other)
  Sender: FDA-Public Use
  Company Number: CA-PFIZER INC-2011169808

PATIENT
  Age: 83 Year
  Sex: Female

DRUGS (4)
  1. COSOPT [Concomitant]
     Indication: INFLAMMATION
     Dosage: 1 GTT, 2X/DAY
     Dates: start: 20110501
  2. DIOVAN [Concomitant]
     Indication: BLOOD PRESSURE
     Dosage: 160 MG, 1X/DAY
     Dates: start: 19910101
  3. XALATAN [Suspect]
     Indication: GLAUCOMA
     Dosage: 1 GTT IN BOTH EYES, 1X/DAY
     Route: 047
     Dates: start: 19930101
  4. DIOVAN [Concomitant]
     Dosage: 80 MG, 1X/DAY

REACTIONS (2)
  - INTRAOCULAR PRESSURE INCREASED [None]
  - GLAUCOMA [None]
